FAERS Safety Report 9641900 (Version 3)
Quarter: 2013Q4

REPORT INFORMATION
  Report Type: Report from Study
  Country: JP (occurrence: JP)
  Receive Date: 20131023
  Receipt Date: 20131113
  Transmission Date: 20140711
  Serious: Yes (Hospitalization)
  Sender: FDA-Public Use
  Company Number: JP-EISAI INC-E2007-01243-CLI-JP

PATIENT
  Age: 38 Year
  Sex: Female
  Weight: 44.3 kg

DRUGS (16)
  1. E2007 (PERAMPANEL) [Suspect]
     Indication: PARTIAL SEIZURES
     Dosage: CORE STUDY
     Route: 048
     Dates: start: 20120813, end: 20130120
  2. E2007 (PERAMPANEL) [Suspect]
     Dosage: EXTENSION PHASE-CONVERSION
     Route: 048
     Dates: start: 20130121, end: 20130503
  3. E2007 (PERAMPANEL) [Suspect]
     Route: 048
     Dates: start: 20130504, end: 20130714
  4. E2007 (PERAMPANEL) [Suspect]
     Route: 048
     Dates: start: 20130716, end: 20130716
  5. E2007 (PERAMPANEL) [Suspect]
     Route: 048
     Dates: start: 20130721, end: 20130721
  6. E2007 (PERAMPANEL) [Suspect]
     Route: 048
     Dates: start: 20130723, end: 20130811
  7. E2007 (PERAMPANEL) [Suspect]
     Route: 048
     Dates: start: 20130812, end: 20130818
  8. E2007 (PERAMPANEL) [Suspect]
     Route: 048
     Dates: start: 20130819, end: 20130825
  9. E2007 (PERAMPANEL) [Suspect]
     Route: 048
     Dates: start: 20130826, end: 20130901
  10. E2007 (PERAMPANEL) [Suspect]
     Route: 048
     Dates: start: 20130902, end: 20130908
  11. HALCION [Concomitant]
     Indication: INSOMNIA
     Route: 048
     Dates: start: 20110228, end: 20130705
  12. TEGRETOL [Concomitant]
     Indication: EPILEPSY
     Route: 048
     Dates: start: 20120117
  13. E KEPPRA [Concomitant]
     Indication: EPILEPSY
     Route: 048
     Dates: start: 20111122
  14. ALLEGRA [Concomitant]
     Indication: RHINITIS ALLERGIC
     Route: 048
     Dates: start: 20110202, end: 20130705
  15. HEPSERA [Concomitant]
     Indication: VIRAL HEPATITIS CARRIER
     Route: 048
     Dates: start: 2002
  16. ZEFIX [Concomitant]
     Indication: VIRAL HEPATITIS CARRIER
     Route: 048
     Dates: start: 2002

REACTIONS (3)
  - Hallucination, auditory [Recovered/Resolved]
  - Delusion [Recovered/Resolved]
  - Anxiety disorder [Recovered/Resolved]
